FAERS Safety Report 9346932 (Version 1)
Quarter: 2013Q2

REPORT INFORMATION
  Report Type: Spontaneous
  Country: US (occurrence: US)
  Receive Date: 20130613
  Receipt Date: 20130613
  Transmission Date: 20140414
  Serious: Yes (Other)
  Sender: FDA-Public Use
  Company Number: US-ASTRAZENECA-2013SE41049

PATIENT
  Age: 15 Year
  Sex: Female

DRUGS (2)
  1. METFORMIN [Suspect]
     Route: 048
  2. QUETIAPINE [Suspect]
     Route: 048

REACTIONS (5)
  - Intentional overdose [Unknown]
  - Lactic acidosis [Recovered/Resolved]
  - Hypotension [Recovered/Resolved]
  - Hypoglycaemia [Recovered/Resolved]
  - Intentional drug misuse [Unknown]
